FAERS Safety Report 7949838 (Version 3)
Quarter: 2012Q4

REPORT INFORMATION
  Report Type: 
  Country: FR (occurrence: FR)
  Receive Date: 20110518
  Receipt Date: 20121127
  Transmission Date: 20130627
  Serious: Yes (Hospitalization)
  Sender: FDA-Public Use
  Company Number: PHHO2011FR08361

PATIENT
  Age: 65 Year
  Sex: Male
  Weight: 82 kg

DRUGS (12)
  1. AMN107 [Suspect]
     Indication: CHRONIC MYELOID LEUKAEMIA
     Dosage: 300 mg, BID
     Route: 048
     Dates: start: 20110330, end: 20110517
  2. AMN107 [Suspect]
     Dosage: No treatment received
     Dates: start: 20110518, end: 20110518
  3. AMN107 [Suspect]
     Dosage: 300 mg, BID
     Route: 048
     Dates: start: 20110519
  4. PREVISCAN [Concomitant]
     Indication: ANTICOAGULANT THERAPY
     Dosage: 5 mg, QD
     Route: 048
     Dates: start: 2005
  5. KARDEGIC [Concomitant]
     Indication: THROMBOSIS PROPHYLAXIS
     Dosage: 75 mg, QD
     Route: 048
     Dates: start: 2005
  6. TAHOR [Concomitant]
     Indication: HYPERCHOLESTEROLAEMIA
     Dosage: 10 mg, QD
     Route: 048
     Dates: start: 2005, end: 20121006
  7. TAHOR [Concomitant]
     Dosage: 40 mg, QD
     Route: 048
     Dates: start: 20121006
  8. LERCAN [Concomitant]
     Indication: HYPERTENSION
     Dosage: 10 mg, Daily
     Route: 048
     Dates: start: 2005
  9. BISOPROLOL [Concomitant]
     Indication: HYPERTENSION
     Dosage: 10 mg, Daily
     Route: 048
     Dates: start: 2005, end: 20121006
  10. BISOPROLOL [Concomitant]
     Dosage: 10 mg, Daily
     Route: 048
     Dates: start: 20121006
  11. RAMIPRIL [Concomitant]
     Indication: HYPERTENSION
     Dosage: 10 mg, Daily
     Route: 048
     Dates: start: 2005, end: 20121006
  12. RAMIPRIL [Concomitant]
     Dosage: 10 mg, Daily
     Route: 048
     Dates: start: 20121006

REACTIONS (3)
  - Myocardial ischaemia [Recovered/Resolved]
  - Angina pectoris [Recovered/Resolved]
  - Concomitant disease progression [Recovered/Resolved]
